FAERS Safety Report 5835795-3 (Version None)
Quarter: 2008Q3

REPORT INFORMATION
  Report Type: 
  Country: None (occurrence: None)
  Receive Date: 20080806
  Receipt Date: 20080731
  Transmission Date: 20090109
  Serious: Yes (Other)
  Sender: FDA-Public Use
  Company Number: DE-BOEHRINGER INGELHEIM GMBH, GERMANY-2008-BP-12007RO

PATIENT
  Age: 59 Year
  Sex: Female
  Weight: 129 kg

DRUGS (6)
  1. LORAZEPAM [Suspect]
     Indication: HYPOMANIA
     Route: 048
  2. QUETIAPINE FUMARATE [Suspect]
     Indication: HYPOMANIA
     Route: 048
  3. RISPERIDONE [Concomitant]
     Indication: HYPOMANIA
     Route: 048
  4. RISPERIDONE [Concomitant]
     Route: 030
  5. VALPROIC ACID [Concomitant]
     Indication: HYPOMANIA
  6. VALPROIC ACID [Concomitant]

REACTIONS (4)
  - ACUTE RESPIRATORY FAILURE [None]
  - DRUG INEFFECTIVE [None]
  - HYPOXIA [None]
  - SLEEP APNOEA SYNDROME [None]
